FAERS Safety Report 15596948 (Version 1)
Quarter: 2018Q4

REPORT INFORMATION
  Report Type: Report from Study
  Country: CA (occurrence: CA)
  Receive Date: 20181108
  Receipt Date: 20181108
  Transmission Date: 20190205
  Serious: Yes (Hospitalization)
  Sender: FDA-Public Use
  Company Number: CA-LEO PHARMA-310790

PATIENT

DRUGS (3)
  1. PROTOPIC [Suspect]
     Active Substance: TACROLIMUS
     Indication: DERMATITIS ATOPIC
     Dosage: APPLIED ONE TUBE OF 60 GRAMS
     Route: 061
  2. BETADERM [Concomitant]
     Active Substance: BETAMETHASONE VALERATE
     Indication: DERMATITIS ATOPIC
     Dosage: APPLIED ONE TUBE OF 30 GRAMS
  3. FUCIDIN [Concomitant]
     Indication: DERMATITIS ATOPIC
     Dosage: APPLIED ONE TUBE OF 30 GRAMS

REACTIONS (2)
  - Eczema infected [Unknown]
  - Skin infection [Unknown]

NARRATIVE: CASE EVENT DATE: 20180729
